FAERS Safety Report 10701475 (Version 1)
Quarter: 2014Q4

REPORT INFORMATION
  Report Type: Spontaneous
  Country: US (occurrence: None)
  Receive Date: 20141223
  Receipt Date: 20141223
  Transmission Date: 20150529
  Serious: No
  Sender: FDA-Public Use
  Company Number: 1000070550

PATIENT
  Age: 80 Year
  Sex: Female

DRUGS (6)
  1. METOPROLOL [Concomitant]
     Active Substance: METOPROLOL
  2. ISOSORBIDE [Concomitant]
     Active Substance: ISOSORBIDE
  3. HECTOROL [Concomitant]
     Active Substance: DOXERCALCIFEROL
  4. LINZESS [Suspect]
     Active Substance: LINACLOTIDE
     Indication: CONSTIPATION
     Dosage: (145MCG (145 MCG, 1 IN 1 D) ORAL
     Route: 048
     Dates: start: 20140907
  5. TRAMADOL [Concomitant]
     Active Substance: TRAMADOL
  6. ZOLPIDEM [Concomitant]
     Active Substance: ZOLPIDEM\ZOLPIDEM TARTRATE

REACTIONS (2)
  - Diarrhoea [None]
  - Abdominal pain [None]

NARRATIVE: CASE EVENT DATE: 20140908
